FAERS Safety Report 8507850-0 (Version None)
Quarter: 2012Q3

REPORT INFORMATION
  Report Type: 
  Country: None (occurrence: None)
  Receive Date: 20120713
  Receipt Date: 20120712
  Transmission Date: 20120928
  Serious: Yes (Disabling)
  Sender: FDA-Public Use
  Company Number: PHHY2012IT054186

PATIENT
  Sex: Female

DRUGS (1)
  1. ZOMETA [Suspect]
     Dosage: 4 MG + 5 ML, QMO
     Route: 042
     Dates: start: 20110901

REACTIONS (2)
  - OSTEONECROSIS [None]
  - EXPOSED BONE IN JAW [None]
